FAERS Safety Report 9116476 (Version 1)
Quarter: 2013Q1

REPORT INFORMATION
  Report Type: Spontaneous
  Country: FR (occurrence: FR)
  Receive Date: 20130225
  Receipt Date: 20130225
  Transmission Date: 20140127
  Serious: Yes (Life-Threatening)
  Sender: FDA-Public Use
  Company Number: FR-US-EMD SERONO, INC.-7194491

PATIENT
  Age: 31 Year
  Sex: Female

DRUGS (3)
  1. OVITRELLE [Suspect]
     Indication: IN VITRO FERTILISATION
     Route: 058
     Dates: start: 20070120, end: 20070120
  2. PUREGON [Suspect]
     Indication: IN VITRO FERTILISATION
     Dosage: 150 IU ONCE DAILY THEN 75 IU
     Route: 058
     Dates: start: 20070111, end: 20070119
  3. ORGALUTRAN [Suspect]
     Indication: IN VITRO FERTILISATION
     Route: 058
     Dates: start: 20070116, end: 20070119

REACTIONS (1)
  - Deep vein thrombosis [Not Recovered/Not Resolved]
